FAERS Safety Report 18580592 (Version 2)
Quarter: 2021Q2

REPORT INFORMATION
  Report Type: Spontaneous
  Country: US (occurrence: US)
  Receive Date: 20201204
  Receipt Date: 20210630
  Transmission Date: 20210717
  Serious: Yes (Hospitalization, Other)
  Sender: FDA-Public Use
  Company Number: US-ASTRAZENECA-2020SF59703

PATIENT
  Age: 63 Year
  Sex: Female
  Weight: 83.9 kg

DRUGS (66)
  1. LOSARTAN. [Concomitant]
     Active Substance: LOSARTAN
     Indication: HYPERTENSION
     Dates: start: 2011, end: 2019
  2. TRIMETHOPRIM. [Concomitant]
     Active Substance: TRIMETHOPRIM
     Indication: INFECTION
     Dates: start: 2013
  3. TRAMADOL. [Concomitant]
     Active Substance: TRAMADOL
     Indication: PAIN
     Dates: start: 2019
  4. CLOBETASOL [Concomitant]
     Active Substance: CLOBETASOL
     Dates: start: 1980
  5. VESICARE [Concomitant]
     Active Substance: SOLIFENACIN SUCCINATE
     Dates: start: 1980
  6. SYNTHROID [Concomitant]
     Active Substance: LEVOTHYROXINE SODIUM
     Dates: start: 1980
  7. NEXIUM [Suspect]
     Active Substance: ESOMEPRAZOLE MAGNESIUM
     Indication: ULCER
     Route: 048
     Dates: start: 200103, end: 201812
  8. NEXIUM 24HR [Suspect]
     Active Substance: ESOMEPRAZOLE MAGNESIUM
     Indication: GASTROOESOPHAGEAL REFLUX DISEASE
     Route: 048
     Dates: start: 2014, end: 2018
  9. PRILOSEC [Suspect]
     Active Substance: OMEPRAZOLE MAGNESIUM
     Indication: ULCER
     Dosage: GENERIC
     Route: 065
     Dates: end: 2018
  10. TOBRAMYCIN. [Concomitant]
     Active Substance: TOBRAMYCIN
     Indication: EYE INFECTION
     Dates: start: 2012
  11. TAGAMET [Concomitant]
     Active Substance: CIMETIDINE
  12. HYDROXYZINE [Concomitant]
     Active Substance: HYDROXYZINE HYDROCHLORIDE
     Dates: start: 1980
  13. LEVOTHYROXINE. [Concomitant]
     Active Substance: LEVOTHYROXINE
     Dates: start: 1980
  14. PREMARIN [Concomitant]
     Active Substance: ESTROGENS, CONJUGATED
     Dates: start: 1980
  15. METFORMIN [Concomitant]
     Active Substance: METFORMIN HYDROCHLORIDE
     Indication: INFECTION
     Dates: start: 2016
  16. VAGIFEM [Concomitant]
     Active Substance: ESTRADIOL
     Indication: INFECTION
     Dates: start: 2016
  17. AZITHROMYCIN ANHYDROUS. [Concomitant]
     Active Substance: AZITHROMYCIN ANHYDROUS
     Indication: INFECTION
     Dates: start: 2016
  18. AMOXICILLIN. [Concomitant]
     Active Substance: AMOXICILLIN
     Indication: INFECTION
     Dates: start: 2014
  19. MAGNESIUM [Concomitant]
     Active Substance: MAGNESIUM
     Indication: BONE DISORDER
     Dates: start: 2013
  20. MAGNESIUM [Concomitant]
     Active Substance: MAGNESIUM
     Indication: MUSCLE DISORDER
     Dates: start: 2013
  21. PEPCID AC [Concomitant]
     Active Substance: FAMOTIDINE
  22. TAMOXIFEN [Concomitant]
     Active Substance: TAMOXIFEN
     Dates: start: 1980
  23. SULINDAC. [Concomitant]
     Active Substance: SULINDAC
     Dates: start: 1980
  24. CETRIZINE [Concomitant]
     Active Substance: CETIRIZINE HYDROCHLORIDE
     Dates: start: 1980
  25. COZAAR [Concomitant]
     Active Substance: LOSARTAN POTASSIUM
     Indication: INFECTION
     Dates: start: 2016
  26. ATIVAN [Concomitant]
     Active Substance: LORAZEPAM
     Indication: INFECTION
     Dates: start: 2009
  27. PRILOSEC [Suspect]
     Active Substance: OMEPRAZOLE MAGNESIUM
     Indication: GASTROOESOPHAGEAL REFLUX DISEASE
     Dosage: GENERIC
     Route: 065
     Dates: end: 2018
  28. SIMVASTATIN. [Concomitant]
     Active Substance: SIMVASTATIN
     Indication: BLOOD CHOLESTEROL INCREASED
     Dates: start: 2009, end: 2014
  29. TUMS [Concomitant]
     Active Substance: CALCIUM CARBONATE
     Dates: start: 1980
  30. OXYBUTYNIN. [Concomitant]
     Active Substance: OXYBUTYNIN CHLORIDE
     Dates: start: 1980
  31. BETAMETHASONE. [Concomitant]
     Active Substance: BETAMETHASONE
     Dates: start: 1980
  32. CARAFATE [Concomitant]
     Active Substance: SUCRALFATE
     Dates: start: 1980
  33. CLOTRIMAZOLE. [Concomitant]
     Active Substance: CLOTRIMAZOLE
     Dates: start: 1980
  34. LOSARTAN. [Concomitant]
     Active Substance: LOSARTAN
     Dates: start: 1980
  35. GLIPIZIDE. [Concomitant]
     Active Substance: GLIPIZIDE
     Indication: INFECTION
     Dates: start: 2009
  36. GLIPIZIDE. [Concomitant]
     Active Substance: GLIPIZIDE
     Indication: INFECTION
     Dates: start: 2016
  37. SOLIFENACIN [Concomitant]
     Active Substance: SOLIFENACIN
     Indication: INFECTION
     Dates: start: 2009
  38. SOLIFENACIN [Concomitant]
     Active Substance: SOLIFENACIN
     Indication: INFECTION
     Dates: start: 2016
  39. PRILOSEC [Suspect]
     Active Substance: OMEPRAZOLE MAGNESIUM
     Indication: ULCER
     Route: 048
     Dates: start: 2001, end: 2018
  40. NEOMYCIN. [Concomitant]
     Active Substance: NEOMYCIN
     Indication: INFECTION
     Dates: start: 2009
  41. CIPROFLOXACIN. [Concomitant]
     Active Substance: CIPROFLOXACIN
     Indication: INFECTION
     Dates: start: 2014
  42. SIMVASTATIN. [Concomitant]
     Active Substance: SIMVASTATIN
     Dates: start: 1980
  43. HYDROXYZINE [Concomitant]
     Active Substance: HYDROXYZINE HYDROCHLORIDE
     Dates: start: 1980
  44. VITAMIN D [Concomitant]
     Active Substance: VITAMIN D NOS
     Indication: INFECTION
     Dates: start: 2016
  45. COZAAR [Concomitant]
     Active Substance: LOSARTAN POTASSIUM
     Indication: INFECTION
     Dates: start: 2009
  46. CYCLOBENZAPRINE. [Concomitant]
     Active Substance: CYCLOBENZAPRINE
     Indication: INFECTION
     Dates: start: 2016
  47. NEXIUM [Suspect]
     Active Substance: ESOMEPRAZOLE MAGNESIUM
     Indication: GASTROOESOPHAGEAL REFLUX DISEASE
     Route: 048
     Dates: start: 200103, end: 201812
  48. PRILOSEC [Suspect]
     Active Substance: OMEPRAZOLE MAGNESIUM
     Indication: GASTROOESOPHAGEAL REFLUX DISEASE
     Route: 048
     Dates: start: 2001, end: 2018
  49. PROVENTIL [Concomitant]
     Active Substance: ALBUTEROL
     Dates: start: 1980
  50. VITAMIN D [Concomitant]
     Active Substance: VITAMIN D NOS
     Indication: INFECTION
     Dates: start: 2009
  51. AZITHROMYCIN ANHYDROUS. [Concomitant]
     Active Substance: AZITHROMYCIN ANHYDROUS
     Indication: INFECTION
     Dates: start: 2009
  52. RANITIDINE. [Concomitant]
     Active Substance: RANITIDINE
     Dates: start: 2009, end: 2020
  53. ROLAIDS [Concomitant]
     Active Substance: CALCIUM CARBONATE\MAGNESIUM HYDROXIDE
     Dates: start: 1980
  54. HYZAAR [Concomitant]
     Active Substance: HYDROCHLOROTHIAZIDE\LOSARTAN POTASSIUM
     Dates: start: 1980
  55. ZYRTEC [Concomitant]
     Active Substance: CETIRIZINE HYDROCHLORIDE
     Dates: start: 1980
  56. CYCLOBENZAPRINE. [Concomitant]
     Active Substance: CYCLOBENZAPRINE
     Indication: INFECTION
     Dates: start: 2009
  57. ATIVAN [Concomitant]
     Active Substance: LORAZEPAM
     Indication: INFECTION
     Dates: start: 2016
  58. NEXIUM [Suspect]
     Active Substance: ESOMEPRAZOLE MAGNESIUM
     Indication: ULCER
     Route: 048
     Dates: start: 2001, end: 2018
  59. NEXIUM [Suspect]
     Active Substance: ESOMEPRAZOLE MAGNESIUM
     Indication: GASTROOESOPHAGEAL REFLUX DISEASE
     Route: 048
     Dates: start: 2001, end: 2018
  60. NEXIUM 24HR [Suspect]
     Active Substance: ESOMEPRAZOLE MAGNESIUM
     Indication: ULCER
     Route: 048
     Dates: start: 2014, end: 2018
  61. AMOXICILLIN. [Concomitant]
     Active Substance: AMOXICILLIN
     Indication: INFECTION
     Dates: start: 2015
  62. ANASTROZOLE. [Concomitant]
     Active Substance: ANASTROZOLE
     Dates: start: 1980
  63. PHENTERMINE. [Concomitant]
     Active Substance: PHENTERMINE
     Dates: start: 1980
  64. NYSTATIN. [Concomitant]
     Active Substance: NYSTATIN
     Dates: start: 1980
  65. METFORMIN [Concomitant]
     Active Substance: METFORMIN HYDROCHLORIDE
     Indication: INFECTION
     Dates: start: 2009
  66. VAGIFEM [Concomitant]
     Active Substance: ESTRADIOL
     Indication: INFECTION
     Dates: start: 2009

REACTIONS (3)
  - Chronic kidney disease [Not Recovered/Not Resolved]
  - Renal failure [Unknown]
  - Acute kidney injury [Unknown]

NARRATIVE: CASE EVENT DATE: 2017
